FAERS Safety Report 6852360-X (Version None)
Quarter: 2010Q3

REPORT INFORMATION
  Report Type: 
  Country: None (occurrence: None)
  Receive Date: 20100717
  Receipt Date: 20071117
  Transmission Date: 20110219
  Serious: No
  Sender: FDA-Public Use
  Company Number: US-PFIZER INC-2007096963

PATIENT
  Sex: Female
  Weight: 54.4 kg

DRUGS (11)
  1. CHANTIX [Suspect]
     Indication: SMOKING CESSATION THERAPY
     Dosage: EVERY DAY
     Dates: start: 20071030
  2. SERTRALINE HCL [Concomitant]
  3. ATENOLOL [Concomitant]
  4. TRIAMTERENE [Concomitant]
  5. ARICEPT [Concomitant]
  6. DIAZEPAM [Concomitant]
  7. ONE-A-DAY [Concomitant]
  8. CALCIUM [Concomitant]
  9. GINKGO BILOBA [Concomitant]
  10. CHONDROITIN/GLUCOSAMINE [Concomitant]
  11. ACETYLSALICYLIC ACID [Concomitant]

REACTIONS (2)
  - ABNORMAL DREAMS [None]
  - FEELING ABNORMAL [None]
